FAERS Safety Report 21322833 (Version 1)
Quarter: 2022Q3

REPORT INFORMATION
  Report Type: Report from Study
  Country: CH (occurrence: CH)
  Receive Date: 20220912
  Receipt Date: 20220912
  Transmission Date: 20221027
  Serious: Yes (Death)
  Sender: FDA-Public Use
  Company Number: CH-ABBVIE-22K-151-4529378-00

PATIENT
  Sex: Female

DRUGS (2)
  1. CARBIDOPA\LEVODOPA [Suspect]
     Active Substance: CARBIDOPA\LEVODOPA
     Indication: Parkinson^s disease
     Dosage: MD: 6 ML, CRD: 4.2 ML/H, CRN: 4 ML/H, ED: 1 ML?24H THERAPY
     Route: 050
     Dates: start: 20220504, end: 20220717
  2. CARBIDOPA\LEVODOPA [Suspect]
     Active Substance: CARBIDOPA\LEVODOPA
     Dosage: MD: 6 ML, CRD: 4.4 ML/H, CRN: 4 ML/H, ED: 1 ML?24H THERAPY
     Route: 050
     Dates: start: 20220717, end: 2022

REACTIONS (1)
  - General physical health deterioration [Fatal]
